FAERS Safety Report 8519725-1 (Version None)
Quarter: 2012Q3

REPORT INFORMATION
  Report Type: 
  Country: None (occurrence: None)
  Receive Date: 20120719
  Receipt Date: 20120709
  Transmission Date: 20120928
  Serious: Yes (Hospitalization)
  Sender: FDA-Public Use
  Company Number: US-BIOGENIDEC-2009BI013475

PATIENT
  Age: 73 Year
  Sex: Female

DRUGS (1)
  1. AVONEX [Suspect]
     Indication: MULTIPLE SCLEROSIS
     Route: 030
     Dates: start: 19980801

REACTIONS (11)
  - MYOCARDIAL INFARCTION [None]
  - DIABETES MELLITUS [None]
  - CATARACT [None]
  - INFLUENZA LIKE ILLNESS [None]
  - ARTERIAL OCCLUSIVE DISEASE [None]
  - NEURALGIA [None]
  - POOR QUALITY SLEEP [None]
  - ANKLE FRACTURE [None]
  - EPISTAXIS [None]
  - HAND FRACTURE [None]
  - GAIT DISTURBANCE [None]
